FAERS Safety Report 7272314-1 (Version None)
Quarter: 2011Q1

REPORT INFORMATION
  Report Type: 
  Country: None (occurrence: None)
  Receive Date: 20110203
  Receipt Date: 20110128
  Transmission Date: 20110831
  Serious: Yes (Life-Threatening, Hospitalization, Other)
  Sender: FDA-Public Use
  Company Number: PHHY2008JP17279

PATIENT
  Sex: Female
  Weight: 53 kg

DRUGS (7)
  1. SALITISON-C [Concomitant]
     Indication: PYREXIA
     Dosage: UNK
     Route: 048
     Dates: start: 20080625
  2. BUSCOPAN [Concomitant]
     Indication: PYREXIA
     Dosage: UNK
     Route: 065
     Dates: start: 20080626
  3. VOLTAREN [Suspect]
     Indication: NASOPHARYNGITIS
     Dosage: 50 MG, UNK
     Route: 054
     Dates: start: 20080626
  4. SALITISON-C [Concomitant]
     Indication: RASH
  5. FAMOTID [Concomitant]
     Indication: PYREXIA
     Dosage: UNK
     Route: 048
     Dates: start: 20080626
  6. VOLTAREN [Suspect]
     Indication: PYREXIA
  7. CELESTAMINE TAB [Concomitant]
     Indication: PYREXIA
     Dosage: UNK
     Route: 048
     Dates: start: 20080626

REACTIONS (10)
  - STEVENS-JOHNSON SYNDROME [None]
  - SKIN DISORDER [None]
  - INTERSTITIAL LUNG DISEASE [None]
  - DYSURIA [None]
  - LYMPHOCYTE STIMULATION TEST POSITIVE [None]
  - ORAL DISORDER [None]
  - PAIN [None]
  - KERATITIS [None]
  - CONDITION AGGRAVATED [None]
  - LIVER DISORDER [None]
